FAERS Safety Report 15096471 (Version 1)
Quarter: 2018Q3

REPORT INFORMATION
  Report Type: Spontaneous
  Country: DE (occurrence: DE)
  Receive Date: 20180702
  Receipt Date: 20180702
  Transmission Date: 20181010
  Serious: Yes (Hospitalization, Other)
  Sender: FDA-Public Use
  Company Number: PHHY2018DE031731

PATIENT
  Age: 64 Year
  Sex: Female
  Weight: 90 kg

DRUGS (17)
  1. METAMIZOLE [Concomitant]
     Active Substance: METAMIZOLE
     Dosage: UNKNOWN
     Route: 065
  2. IBUPROFEN. [Concomitant]
     Active Substance: IBUPROFEN
     Indication: PRODUCT USED FOR UNKNOWN INDICATION
  3. L?THYROXINE [Concomitant]
     Active Substance: LEVOTHYROXINE
     Indication: PRODUCT USED FOR UNKNOWN INDICATION
     Dosage: NI
     Route: 065
  4. IBUPROFEN. [Concomitant]
     Active Substance: IBUPROFEN
     Dosage: UNKNOWN
     Route: 065
  5. METAMIZOLE [Concomitant]
     Active Substance: METAMIZOLE
     Indication: PRODUCT USED FOR UNKNOWN INDICATION
  6. SIMVASTATIN. [Suspect]
     Active Substance: SIMVASTATIN
     Indication: PRODUCT USED FOR UNKNOWN INDICATION
     Dosage: NI
     Route: 065
  7. TRAMADOLOR ^HEXAL^ [Suspect]
     Active Substance: TRAMADOL HYDROCHLORIDE
     Indication: PAIN
     Route: 048
     Dates: start: 20080227, end: 20080407
  8. MACROGOL [Concomitant]
     Active Substance: POLYETHYLENE GLYCOLS
     Indication: PRODUCT USED FOR UNKNOWN INDICATION
     Dosage: NI
     Route: 065
  9. DICLOFENAC [Concomitant]
     Active Substance: DICLOFENAC
     Indication: PRODUCT USED FOR UNKNOWN INDICATION
  10. FLUPIRTINE MALEATE [Suspect]
     Active Substance: FLUPIRTINE MALEATE
     Indication: OSTEOPOROSIS
     Route: 065
  11. CELEBREX [Suspect]
     Active Substance: CELECOXIB
     Route: 048
     Dates: start: 20080227, end: 20080407
  12. CELEBREX [Suspect]
     Active Substance: CELECOXIB
     Indication: PAIN
  13. OMEPRAZOLE. [Suspect]
     Active Substance: OMEPRAZOLE
     Indication: PRODUCT USED FOR UNKNOWN INDICATION
     Dosage: NI
     Route: 065
  14. DICLOFENAC [Concomitant]
     Active Substance: DICLOFENAC
     Dosage: UNKNOWN
     Route: 065
  15. KATADOLON [Suspect]
     Active Substance: FLUPIRTINE
     Dosage: 400 MG, UNK
     Route: 048
     Dates: start: 20080227, end: 20080407
  16. KATADOLON [Suspect]
     Active Substance: FLUPIRTINE
     Indication: PAIN
  17. CALCIUM WITH VITAMIN D [Concomitant]
     Active Substance: CALCIUM\VITAMIN D
     Indication: PRODUCT USED FOR UNKNOWN INDICATION
     Dosage: NI
     Route: 065

REACTIONS (8)
  - Alanine aminotransferase increased [Recovering/Resolving]
  - Aspartate aminotransferase increased [Recovering/Resolving]
  - Chromaturia [Recovering/Resolving]
  - Blood alkaline phosphatase increased [Recovering/Resolving]
  - International normalised ratio abnormal [Recovering/Resolving]
  - Hepatic necrosis [Recovered/Resolved with Sequelae]
  - Drug-induced liver injury [Recovering/Resolving]
  - Fatigue [Recovering/Resolving]

NARRATIVE: CASE EVENT DATE: 20080408
